FAERS Safety Report 8721781 (Version 3)
Quarter: 2012Q4

REPORT INFORMATION
  Report Type: 
  Country: US (occurrence: US)
  Receive Date: 20120814
  Receipt Date: 20121008
  Transmission Date: 20130627
  Serious: Yes (Other)
  Sender: FDA-Public Use
  Company Number: US-PFIZER INC-2012195026

PATIENT
  Age: 61 Year
  Sex: Female
  Weight: 79.4 kg

DRUGS (14)
  1. ADVIL [Suspect]
     Indication: HEADACHE
     Dosage: 200 mg, as needed
     Route: 048
  2. LEVOXYL [Concomitant]
     Indication: THYROID DISORDER
     Dosage: 50 ug, UNK
  3. LOSARTAN [Concomitant]
     Indication: HYPERTENSION
     Dosage: 25 mg, UNK
  4. NIFEDICAL XL [Concomitant]
     Indication: HYPERTENSION
     Dosage: 60 mg, UNK
  5. GABAPENTIN [Concomitant]
     Dosage: 100 mg, UNK
  6. VITAMIN C [Concomitant]
     Dosage: UNK
  7. VITAMIN D [Concomitant]
     Dosage: UNK
  8. VITAMIN E [Concomitant]
     Dosage: UNK
  9. FISH OIL [Concomitant]
     Dosage: UNK
  10. CENTRUM SILVER [Concomitant]
     Dosage: UNK
  11. VERAPAMIL [Concomitant]
     Dosage: UNK
  12. AMLODINE [Concomitant]
     Dosage: UNK
  13. LISINOPRIL [Concomitant]
     Dosage: UNK
  14. ATENOLOL [Concomitant]
     Dosage: UNK

REACTIONS (4)
  - Uterine disorder [Recovered/Resolved]
  - Gallbladder disorder [Recovered/Resolved]
  - Gallbladder injury [Recovered/Resolved]
  - Hot flush [Not Recovered/Not Resolved]
